FAERS Safety Report 21418571 (Version 1)
Quarter: 2022Q4

REPORT INFORMATION
  Report Type: Spontaneous
  Country: US (occurrence: None)
  Receive Date: 20221005
  Receipt Date: 20221005
  Transmission Date: 20230113
  Serious: No
  Sender: FDA-Public Use
  Company Number: None

PATIENT
  Age: 76 Year
  Sex: Female
  Weight: 72.57 kg

DRUGS (13)
  1. KISQALI [Suspect]
     Active Substance: RIBOCICLIB
     Indication: Breast cancer female
     Dosage: OTHER FREQUENCY : 3W,1W OFF;?
     Route: 048
  2. ASCORBIC ACID [Concomitant]
  3. CALCIUM CITRATE + D3 [Concomitant]
  4. CENTRUM SILVER [Concomitant]
  5. JARDIANCE [Concomitant]
  6. METFORMIN [Concomitant]
  7. MOMETASONE [Concomitant]
  8. OZEMPIC [Concomitant]
  9. REPAGLINIDE [Concomitant]
  10. RESTASIS SILVER [Concomitant]
  11. SULFADIAZINE [Concomitant]
  12. VITAMIN D3 [Concomitant]
  13. WARFARIN [Concomitant]

REACTIONS (2)
  - Disease progression [None]
  - Metastases to liver [None]
